FAERS Safety Report 11070443 (Version 1)
Quarter: 2015Q2

REPORT INFORMATION
  Report Type: Spontaneous
  Country: DE (occurrence: DE)
  Receive Date: 20150427
  Receipt Date: 20150427
  Transmission Date: 20150821
  Serious: Yes (Hospitalization, Other)
  Sender: FDA-Public Use
  Company Number: PHHY2015DE050453

PATIENT
  Sex: Female

DRUGS (2)
  1. FALITHROM [Concomitant]
     Active Substance: PHENPROCOUMON
     Indication: PRODUCT USED FOR UNKNOWN INDICATION
     Route: 065
  2. VOLTAREN RESINAT [Suspect]
     Active Substance: DICLOFENAC
     Indication: PAIN IN EXTREMITY
     Dosage: 145.6 MG, BID FOR 3 DAYS
     Route: 048

REACTIONS (2)
  - Coma [Not Recovered/Not Resolved]
  - Cerebral haemorrhage [Not Recovered/Not Resolved]
